FAERS Safety Report 13084675 (Version 2)
Quarter: 2017Q1

REPORT INFORMATION
  Report Type: Report from Study
  Country: US (occurrence: US)
  Receive Date: 20170104
  Receipt Date: 20170126
  Transmission Date: 20170428
  Serious: Yes (Death, Hospitalization)
  Sender: FDA-Public Use
  Company Number: US-BAYER-2015-179771

PATIENT
  Age: 70 Year
  Sex: Male

DRUGS (4)
  1. NEXAVAR [Suspect]
     Active Substance: SORAFENIB
     Indication: HEPATIC CANCER
     Dosage: 400 MG, BID
     Route: 048
  2. NEXAVAR [Suspect]
     Active Substance: SORAFENIB
     Indication: HEPATIC CANCER
     Dosage: 200 MG, BID
     Route: 048
     Dates: start: 20150607
  3. NEXAVAR [Suspect]
     Active Substance: SORAFENIB
     Indication: HEPATIC CANCER
     Dosage: UNK MG, UNK
     Route: 048
     Dates: start: 20150407, end: 20150421
  4. NEXAVAR [Suspect]
     Active Substance: SORAFENIB
     Indication: HEPATIC CANCER
     Dosage: 200 MG, BID (1 TAB IN AM AND 1 TAB ON PM))
     Route: 048
     Dates: start: 20150426

REACTIONS (23)
  - Death [Fatal]
  - Skin lesion [None]
  - Musculoskeletal stiffness [None]
  - Vomiting [None]
  - Abdominal pain [Not Recovered/Not Resolved]
  - Diarrhoea [None]
  - Skin odour abnormal [None]
  - Weight decreased [None]
  - Decreased appetite [None]
  - Pain in extremity [None]
  - Constipation [Not Recovered/Not Resolved]
  - Oedema peripheral [None]
  - Diarrhoea [None]
  - Dry skin [None]
  - Blood urine present [None]
  - Limb discomfort [None]
  - Peripheral swelling [None]
  - Mobility decreased [None]
  - Pain in extremity [None]
  - Hospitalisation [None]
  - Fatigue [None]
  - Musculoskeletal stiffness [Not Recovered/Not Resolved]
  - Fluid retention [None]

NARRATIVE: CASE EVENT DATE: 20150419
